FAERS Safety Report 4553570-7 (Version None)
Quarter: 2004Q4

REPORT INFORMATION
  Report Type: 
  Country: None (occurrence: None)
  Receive Date: 20041227
  Receipt Date: 20040901
  Transmission Date: 20050328
  Serious: No
  Sender: FDA-Public Use
  Company Number: 04P-163-0272080-00

PATIENT
  Age: 51 Year
  Sex: Female
  Weight: 101.6057 kg

DRUGS (9)
  1. HUMIRA [Suspect]
     Indication: RHEUMATOID ARTHRITIS
     Dosage: 40 MG, 1 IN 2 WK, SUBCUTANEOUS
     Route: 058
     Dates: start: 20040826
  2. GLUCOPHAGE [Concomitant]
  3. BUCINDOLOL HYDROCHLORIDE [Concomitant]
  4. VASERETIC [Concomitant]
  5. HYDROXYCHLOROQUINE PHOSPHATE [Concomitant]
  6. VENLAFAXINE HCL [Concomitant]
  7. CLONAZEPAM [Concomitant]
  8. TIZANIDINE HCL [Concomitant]
  9. ACETYLSALICYLIC ACID SRT [Concomitant]

REACTIONS (5)
  - ABDOMINAL PAIN [None]
  - DIARRHOEA [None]
  - DIZZINESS [None]
  - MYALGIA [None]
  - NAUSEA [None]
